FAERS Safety Report 9059489 (Version 1)
Quarter: 2013Q1

REPORT INFORMATION
  Report Type: Spontaneous
  Country: IT (occurrence: IT)
  Receive Date: 20130211
  Receipt Date: 20130211
  Transmission Date: 20140127
  Serious: Yes (Other)
  Sender: FDA-Public Use
  Company Number: PHHY2013IT008694

PATIENT
  Age: 53 None
  Sex: Female

DRUGS (8)
  1. METFORMIN [Suspect]
     Dosage: 1 DF, DAILY
     Route: 048
     Dates: start: 20111116, end: 20121115
  2. SIMVASTATIN [Suspect]
     Dosage: 1 DF, DAILY
     Route: 048
     Dates: start: 20111116, end: 20121115
  3. NIMESULIDE [Suspect]
     Dosage: 1 DF
     Route: 048
     Dates: start: 20121114, end: 20121114
  4. PERINDOPRIL [Suspect]
     Dosage: 1 DF, DAILY
     Route: 048
     Dates: start: 20111116, end: 20121115
  5. CARDICOR [Concomitant]
  6. ACTOS [Concomitant]
  7. MODURETIC [Concomitant]
  8. AGGRENOX [Concomitant]

REACTIONS (1)
  - Hypertransaminasaemia [Not Recovered/Not Resolved]
